FAERS Safety Report 8581529-1 (Version None)
Quarter: 2012Q3

REPORT INFORMATION
  Report Type: 
  Country: None (occurrence: None)
  Receive Date: 20120809
  Receipt Date: 20120730
  Transmission Date: 20120928
  Serious: No
  Sender: FDA-Public Use
  Company Number: JP-JNJFOC-20120707732

PATIENT
  Age: 5 Decade
  Sex: Male

DRUGS (3)
  1. RISPERDAL [Suspect]
     Route: 048
     Dates: start: 20120501
  2. RISPERDAL [Suspect]
     Indication: PRODUCT USED FOR UNKNOWN INDICATION
     Route: 048
     Dates: start: 20120601
  3. RISPERDAL [Suspect]
     Route: 048
     Dates: start: 20120701

REACTIONS (2)
  - SCHIZOPHRENIA [None]
  - DIARRHOEA [None]
